FAERS Safety Report 4533715-5 (Version None)
Quarter: 2004Q4

REPORT INFORMATION
  Report Type: 
  Country: None (occurrence: None)
  Receive Date: 20041221
  Receipt Date: 20041125
  Transmission Date: 20050328
  Serious: Yes (Disabling)
  Sender: FDA-Public Use
  Company Number: JP-GLAXOSMITHKLINE-B0358226A

PATIENT
  Age: 55 Year
  Sex: Male
  Weight: 57 kg

DRUGS (21)
  1. ALKERAN [Suspect]
     Indication: BONE MARROW CONDITIONING REGIMEN
     Route: 042
     Dates: start: 20040726, end: 20040726
  2. ZOVIRAX [Suspect]
     Indication: HERPES VIRUS INFECTION
     Route: 048
     Dates: start: 20040727, end: 20040803
  3. PURSENNID [Suspect]
     Indication: CONSTIPATION
     Route: 048
     Dates: start: 20040404, end: 20040729
  4. CIPROXAN [Suspect]
     Indication: ENTERITIS INFECTIOUS
     Route: 048
     Dates: start: 20040726, end: 20040731
  5. BAKTAR [Suspect]
     Indication: INFECTION PROPHYLAXIS
     Route: 048
     Dates: start: 20040806, end: 20040812
  6. SULPERAZON [Suspect]
     Indication: NEUTROPENIC INFECTION
     Route: 042
     Dates: start: 20040802, end: 20040809
  7. AMIKACIN SULFATE [Suspect]
     Indication: NEUTROPENIC INFECTION
     Route: 042
     Dates: start: 20040803, end: 20040807
  8. GRAN [Concomitant]
     Dates: start: 20040729, end: 20040806
  9. MEVALOTIN [Concomitant]
     Route: 048
     Dates: start: 20040402
  10. ITRIZOLE [Concomitant]
     Route: 048
     Dates: start: 20040415
  11. LAC B [Concomitant]
     Route: 048
     Dates: start: 20040723
  12. POLYMYXIN B SULFATE [Concomitant]
     Route: 048
     Dates: start: 20040723
  13. ALLOPURINOL [Concomitant]
     Route: 048
     Dates: start: 20040723, end: 20040806
  14. FUNGIZONE [Concomitant]
     Route: 048
     Dates: start: 20040723
  15. DEPAS [Concomitant]
     Route: 048
     Dates: start: 20040725, end: 20040805
  16. FRAGMIN [Concomitant]
     Route: 042
     Dates: start: 20040726, end: 20040827
  17. SEROTONE [Concomitant]
     Route: 042
     Dates: start: 20040726, end: 20040727
  18. IMMUNOGLOBINS [Concomitant]
     Route: 042
     Dates: start: 20040728, end: 20040730
  19. HAPTOGLOBIN [Concomitant]
     Route: 042
     Dates: start: 20040728, end: 20040728
  20. HYDROCORTONE [Concomitant]
     Route: 042
     Dates: start: 20040728, end: 20040728
  21. ADRIACIN [Concomitant]
     Route: 042
     Dates: start: 20040415, end: 20040530

REACTIONS (13)
  - ALANINE AMINOTRANSFERASE INCREASED [None]
  - ASPARTATE AMINOTRANSFERASE INCREASED [None]
  - BLOOD ALBUMIN DECREASED [None]
  - BLOOD ALKALINE PHOSPHATASE INCREASED [None]
  - BLOOD CREATININE INCREASED [None]
  - BLOOD LACTATE DEHYDROGENASE INCREASED [None]
  - BLOOD PHOSPHORUS INCREASED [None]
  - C-REACTIVE PROTEIN INCREASED [None]
  - DIARRHOEA [None]
  - DRUG ERUPTION [None]
  - FEBRILE NEUTROPENIA [None]
  - GAMMA-GLUTAMYLTRANSFERASE INCREASED [None]
  - LIVER DISORDER [None]
